FAERS Safety Report 12212793 (Version 1)
Quarter: 2016Q1

REPORT INFORMATION
  Report Type: Spontaneous
  Country: DE (occurrence: DE)
  Receive Date: 20160328
  Receipt Date: 20160328
  Transmission Date: 20160526
  Serious: Yes (Other)
  Sender: FDA-Public Use
  Company Number: DE-HOSPIRA-3214733

PATIENT
  Age: 29 Year
  Sex: Female

DRUGS (1)
  1. PROPOFOL. [Suspect]
     Active Substance: PROPOFOL
     Indication: ANAESTHESIA PROCEDURE
     Route: 042

REACTIONS (4)
  - Diarrhoea [Recovering/Resolving]
  - Drug-induced liver injury [Recovering/Resolving]
  - Somnolence [Recovering/Resolving]
  - Hepatic enzyme increased [Recovering/Resolving]

NARRATIVE: CASE EVENT DATE: 20151027
